FAERS Safety Report 11862187 (Version 2)
Quarter: 2016Q1

REPORT INFORMATION
  Report Type: Report from Study
  Country: US (occurrence: US)
  Receive Date: 20151222
  Receipt Date: 20160119
  Transmission Date: 20160526
  Serious: No
  Sender: FDA-Public Use
  Company Number: US-AMGEN-USASP2015134075

PATIENT
  Age: 84 Year
  Sex: Female

DRUGS (1)
  1. ENBREL [Suspect]
     Active Substance: ETANERCEPT
     Indication: PSORIATIC ARTHROPATHY
     Dosage: 50 MG, QWK
     Route: 065
     Dates: start: 20151109

REACTIONS (6)
  - Viral infection [Unknown]
  - Insomnia [Unknown]
  - Dizziness [Unknown]
  - Pain [Unknown]
  - Nervousness [Unknown]
  - Tachyphrenia [Unknown]

NARRATIVE: CASE EVENT DATE: 2015
